FAERS Safety Report 9040976 (Version 1)
Quarter: 2013Q1

REPORT INFORMATION
  Report Type: Spontaneous
  Country: US (occurrence: None)
  Receive Date: 20130123
  Receipt Date: 20130123
  Transmission Date: 20140127
  Serious: Yes (Other)
  Sender: FDA-Public Use
  Company Number: None

PATIENT
  Age: 62 Year
  Sex: Male
  Weight: 61.69 kg

DRUGS (1)
  1. CIPROFLOXACIN [Suspect]
     Dosage: 1 TAB  X DAILY MOUTH
     Route: 048
     Dates: start: 20121018, end: 20121101

REACTIONS (3)
  - Arthralgia [None]
  - Pain in extremity [None]
  - Back pain [None]
